FAERS Safety Report 10357636 (Version 1)
Quarter: 2014Q3

REPORT INFORMATION
  Report Type: Spontaneous
  Country: US (occurrence: US)
  Receive Date: 20140801
  Receipt Date: 20140801
  Transmission Date: 20150326
  Serious: Yes (Other)
  Sender: FDA-Public Use
  Company Number: US-AMGEN-USASP2014057412

PATIENT
  Sex: Female
  Weight: 78.01 kg

DRUGS (1)
  1. PROLIA [Suspect]
     Active Substance: DENOSUMAB
     Indication: OSTEOPOROSIS POSTMENOPAUSAL
     Dosage: UNK
     Route: 065

REACTIONS (9)
  - Vitamin D deficiency [Unknown]
  - Angina pectoris [Unknown]
  - Body height decreased [Unknown]
  - Hypertension [Unknown]
  - Weight decreased [Unknown]
  - Hyperlipidaemia [Unknown]
  - Renal failure chronic [Unknown]
  - Back pain [Unknown]
  - Osteoarthritis [Unknown]
